FAERS Safety Report 8260209-6 (Version None)
Quarter: 2012Q2

REPORT INFORMATION
  Report Type: 
  Country: None (occurrence: None)
  Receive Date: 20120404
  Receipt Date: 20120322
  Transmission Date: 20120825
  Serious: Yes (Other)
  Sender: FDA-Public Use
  Company Number: CHPA2012US005630

PATIENT
  Sex: Male

DRUGS (1)
  1. EXCEDRIN EXTRA STRENGTH TABLETS [Suspect]
     Indication: HEADACHE
     Dosage: 2 DF, PRN
     Route: 048
     Dates: start: 19970101, end: 20120308

REACTIONS (4)
  - LIGAMENT SPRAIN [None]
  - NEPHROLITHIASIS [None]
  - MUSCLE STRAIN [None]
  - RENAL PAIN [None]
